FAERS Safety Report 11428402 (Version 1)
Quarter: 2015Q3

REPORT INFORMATION
  Report Type: Spontaneous
  Country: US (occurrence: None)
  Receive Date: 20150827
  Receipt Date: 20150827
  Transmission Date: 20151125
  Serious: Yes (Life-Threatening, Hospitalization)
  Sender: FDA-Public Use
  Company Number: None

PATIENT
  Age: 25 Year
  Sex: Male
  Weight: 72.58 kg

DRUGS (4)
  1. LEVAQUIN [Suspect]
     Active Substance: LEVOFLOXACIN
     Indication: PNEUMONIA
     Route: 042
     Dates: start: 20150604, end: 20150604
  2. ASPIRIN. [Concomitant]
     Active Substance: ASPIRIN
  3. METROPLOL [Concomitant]
  4. MULTAQ [Concomitant]
     Active Substance: DRONEDARONE

REACTIONS (4)
  - Heart rate increased [None]
  - Cardio-respiratory arrest [None]
  - Atrial fibrillation [None]
  - Electrocardiogram QRS complex prolonged [None]

NARRATIVE: CASE EVENT DATE: 20150604
